FAERS Safety Report 10125744 (Version 1)
Quarter: 2014Q2

REPORT INFORMATION
  Report Type: Spontaneous
  Country: FR (occurrence: FR)
  Receive Date: 20140425
  Receipt Date: 20140425
  Transmission Date: 20141212
  Serious: Yes (Hospitalization)
  Sender: FDA-Public Use
  Company Number: FR-BAXTER-2014BAX019662

PATIENT
  Age: 15 Year
  Sex: Female

DRUGS (15)
  1. UROMITEXAN 5 G/50 ML, SOLUTION INJECTABLE POUR PERFUSION EN FLACON [Suspect]
     Indication: PROPHYLAXIS
     Route: 042
     Dates: start: 20140223, end: 20140223
  2. IFOSFAMIDE [Suspect]
     Indication: OSTEOSARCOMA METASTATIC
     Dosage: 4 G/M2
     Route: 042
     Dates: start: 20140222, end: 20140222
  3. PLITICAN [Suspect]
     Indication: PRODUCT USED FOR UNKNOWN INDICATION
     Route: 042
     Dates: start: 20140222, end: 20140223
  4. ETOPOSIDE [Concomitant]
     Indication: OSTEOSARCOMA METASTATIC
     Route: 042
     Dates: start: 20140120, end: 20140120
  5. ATARAX [Concomitant]
     Indication: SEDATION
     Route: 048
     Dates: start: 20140222, end: 20140222
  6. AMIKACIN MYLAN [Concomitant]
     Indication: PROPHYLAXIS
     Route: 042
     Dates: start: 20140221, end: 20140223
  7. CALCIUM [Concomitant]
     Indication: DRUG THERAPY
     Route: 065
  8. CHLORMADINONE [Concomitant]
     Indication: DRUG THERAPY
     Route: 065
  9. LYRICA [Concomitant]
     Indication: DRUG THERAPY
     Route: 065
  10. MOPRAL [Concomitant]
     Indication: DRUG THERAPY
     Route: 065
  11. SOLUMEDROL [Concomitant]
     Indication: DRUG THERAPY
     Route: 065
  12. VANCOMYCINE [Concomitant]
     Indication: DRUG THERAPY
     Route: 065
  13. ZELITREX [Concomitant]
     Indication: DRUG THERAPY
     Route: 065
  14. ZOPHREN [Concomitant]
     Indication: DRUG THERAPY
     Route: 065
  15. PARACETAMOL [Concomitant]
     Indication: DRUG THERAPY
     Route: 065

REACTIONS (2)
  - Neurotoxicity [Recovered/Resolved]
  - Encephalopathy [Recovered/Resolved]
